FAERS Safety Report 23046232 (Version 2)
Quarter: 2024Q1

REPORT INFORMATION
  Report Type: Spontaneous
  Country: FR (occurrence: FR)
  Receive Date: 20231009
  Receipt Date: 20240129
  Transmission Date: 20240409
  Serious: Yes (Hospitalization)
  Sender: FDA-Public Use
  Company Number: None

PATIENT
  Age: 73 Year
  Sex: Female
  Weight: 70 kg

DRUGS (4)
  1. ESCITALOPRAM OXALATE [Suspect]
     Active Substance: ESCITALOPRAM OXALATE
     Indication: Depression
     Route: 048
     Dates: end: 20230826
  2. METFORMIN HYDROCHLORIDE [Concomitant]
     Active Substance: METFORMIN HYDROCHLORIDE
     Indication: Diabetes mellitus
     Dosage: 2000MG IN THE EVENING (2000MG LE SOIR)
     Route: 048
  3. CANDESARTAN [Concomitant]
     Active Substance: CANDESARTAN
     Indication: Hypertension
     Dosage: 16MG/D (16MG/J)
     Route: 048
  4. LEVOTHYROXINE [Concomitant]
     Active Substance: LEVOTHYROXINE\LEVOTHYROXINE SODIUM
     Indication: Hypothyroidism
     Dosage: 100UG OR 125UG 1 DAY/2 (100 UG OU 125UG 1JOUR/2)
     Route: 048

REACTIONS (2)
  - Coagulopathy [Not Recovered/Not Resolved]
  - Haematoma [Recovered/Resolved]

NARRATIVE: CASE EVENT DATE: 20220101
